FAERS Safety Report 5655225-4 (Version None)
Quarter: 2008Q1

REPORT INFORMATION
  Report Type: 
  Country: None (occurrence: None)
  Receive Date: 20080219
  Receipt Date: 20071112
  Transmission Date: 20080703
  Serious: No
  Sender: FDA-Public Use
  Company Number: WAES 0711USA02621

PATIENT
  Age: 74 Year
  Sex: Female

DRUGS (5)
  1. JANUVIA [Suspect]
     Indication: TYPE 2 DIABETES MELLITUS
     Dosage: 100 MG/DAILY/PO
     Route: 048
     Dates: start: 20071013, end: 20071015
  2. AMARYL [Concomitant]
  3. DIOVAN [Concomitant]
  4. LESCOL [Concomitant]
  5. PLAVIX [Concomitant]

REACTIONS (1)
  - BLOOD GLUCOSE INCREASED [None]
